FAERS Safety Report 25917932 (Version 2)
Quarter: 2025Q4

REPORT INFORMATION
  Report Type: Spontaneous
  Country: JP (occurrence: JP)
  Receive Date: 20251014
  Receipt Date: 20251226
  Transmission Date: 20260118
  Serious: Yes (Hospitalization, Other)
  Sender: ROCHE
  Company Number: JP-CHUGAI-2025032170

PATIENT
  Age: 79 Year
  Sex: Male

DRUGS (2)
  1. CELLCEPT [Suspect]
     Active Substance: MYCOPHENOLATE MOFETIL
     Indication: Interstitial lung disease
     Dosage: UNK
     Route: 048
  2. PREDNISOLONE [Suspect]
     Active Substance: PREDNISOLONE
     Indication: Interstitial lung disease

REACTIONS (6)
  - Diverticular perforation [Unknown]
  - Peritonitis [Unknown]
  - Cytomegalovirus enterocolitis [Recovered/Resolved]
  - Large intestinal ulcer perforation [Unknown]
  - Off label use [Unknown]
  - Large intestine perforation [Unknown]
